FAERS Safety Report 16670575 (Version 2)
Quarter: 2019Q4

REPORT INFORMATION
  Report Type: Spontaneous
  Country: US (occurrence: US)
  Receive Date: 20190805
  Receipt Date: 20191105
  Transmission Date: 20200122
  Serious: No
  Sender: FDA-Public Use
  Company Number: US-RADIUS HEALTH INC.-2019US001981

PATIENT
  Sex: Female

DRUGS (1)
  1. TYMLOS [Suspect]
     Active Substance: ABALOPARATIDE
     Indication: OSTEOPOROSIS POSTMENOPAUSAL
     Dosage: 80 MCG, QD
     Route: 058
     Dates: end: 201906

REACTIONS (6)
  - Blood test abnormal [Recovered/Resolved]
  - Bone pain [Unknown]
  - Malabsorption [Unknown]
  - Blood calcium increased [Unknown]
  - Thirst [Unknown]
  - Fatigue [Unknown]
